FAERS Safety Report 7941692-X (Version None)
Quarter: 2011Q4

REPORT INFORMATION
  Report Type: 
  Country: None (occurrence: None)
  Receive Date: 20111128
  Receipt Date: 20111128
  Transmission Date: 20120403
  Serious: Yes (Death)
  Sender: FDA-Public Use
  Company Number: None

PATIENT
  Age: 90 Year
  Sex: Female
  Weight: 77 kg

DRUGS (2)
  1. LOVENOX [Suspect]
     Indication: DEEP VEIN THROMBOSIS
     Dosage: 80 MG
     Route: 003
     Dates: start: 20111111, end: 20111114
  2. LOVENOX [Suspect]
     Indication: PULMONARY EMBOLISM
     Dosage: 80 MG
     Route: 003
     Dates: start: 20111111, end: 20111114

REACTIONS (1)
  - RETROPERITONEAL HAEMORRHAGE [None]
